FAERS Safety Report 5458070-8 (Version None)
Quarter: 2007Q3

REPORT INFORMATION
  Report Type: 
  Country: None (occurrence: None)
  Receive Date: 20070917
  Receipt Date: 20070907
  Transmission Date: 20080115
  Serious: Yes (Hospitalization)
  Sender: FDA-Public Use
  Company Number: 2007SP018096

PATIENT
  Age: 63 Year
  Sex: Female
  Weight: 68 kg

DRUGS (17)
  1. PEG-INTRON [Suspect]
     Indication: HEPATITIS C
     Dosage: 50 MCG;QW;SC
     Route: 058
     Dates: start: 20060301, end: 20070122
  2. PEG-INTRON [Suspect]
     Indication: HEPATITIS C
     Dosage: 50 MCG;QW;SC
     Route: 058
     Dates: start: 20070208, end: 20070228
  3. REBETOL [Suspect]
     Indication: HEPATITIS C
     Dosage: 400 MG;QD;PO; 200 MG;QD;PO
     Route: 048
     Dates: start: 20060301, end: 20060307
  4. REBETOL [Suspect]
     Indication: HEPATITIS C
     Dosage: 400 MG;QD;PO; 200 MG;QD;PO
     Route: 048
     Dates: start: 20060308, end: 20060614
  5. REBETOL [Suspect]
     Indication: HEPATITIS C
     Dosage: 400 MG;QD;PO; 200 MG;QD;PO
     Route: 048
     Dates: start: 20060615, end: 20060720
  6. REBETOL [Suspect]
     Indication: HEPATITIS C
     Dosage: 400 MG;QD;PO; 200 MG;QD;PO
     Route: 048
     Dates: start: 20060721, end: 20070122
  7. REBETOL [Suspect]
     Indication: HEPATITIS C
     Dosage: 400 MG;QD;PO; 200 MG;QD;PO
     Route: 048
     Dates: start: 20070208, end: 20070306
  8. AMLODIPINE [Concomitant]
  9. CANDESARTAN CILEXETIL [Concomitant]
  10. LOXONIN [Concomitant]
  11. MUCOSTA [Concomitant]
  12. ISODINE GARGLE [Concomitant]
  13. NORVASC [Concomitant]
  14. VITAMEDIN [Concomitant]
  15. RINDERON-VG [Concomitant]
  16. OLOPATADINE HYDROCHLORIDE [Concomitant]
  17. BUSCOPAN [Concomitant]

REACTIONS (2)
  - PLATELET COUNT DECREASED [None]
  - RED BLOOD CELL COUNT DECREASED [None]
